FAERS Safety Report 4632740-3 (Version None)
Quarter: 2005Q2

REPORT INFORMATION
  Report Type: 
  Country: None (occurrence: None)
  Receive Date: 20050408
  Receipt Date: 20050408
  Transmission Date: 20051028
  Serious: Yes (Life-Threatening, Hospitalization)
  Sender: FDA-Public Use
  Company Number: None

PATIENT
  Sex: Female
  Weight: 53.4 kg

DRUGS (9)
  1. COUMADIN [Suspect]
     Indication: CORONARY ARTERY DISEASE
     Dosage: 2 MG DAILY ORAL
     Route: 048
     Dates: start: 20000901, end: 20050329
  2. ZITHROMAX [Suspect]
     Indication: UPPER RESPIRATORY TRACT INFECTION
     Dosage: 500 MGX1,250 DAILY ORAL
     Route: 048
     Dates: start: 20050321, end: 20050325
  3. LEVAQUIN [Concomitant]
  4. POTASSIUM CHLORIDE [Concomitant]
  5. ENALAPRIL [Concomitant]
  6. METOPROLOL TARTRATE [Concomitant]
  7. RIVASTIGMIN [Concomitant]
  8. NITROGLYCERIN [Concomitant]
  9. RANITIDINE [Concomitant]

REACTIONS (15)
  - ABNORMAL BEHAVIOUR [None]
  - BLOOD CREATININE INCREASED [None]
  - BLOOD UREA INCREASED [None]
  - CONTUSION [None]
  - DECREASED APPETITE [None]
  - DIZZINESS [None]
  - DYSPHAGIA [None]
  - HAEMATURIA [None]
  - HAEMOGLOBIN DECREASED [None]
  - HAEMOPTYSIS [None]
  - INTERNATIONAL NORMALISED RATIO INCREASED [None]
  - MENTAL STATUS CHANGES [None]
  - ORAL INTAKE REDUCED [None]
  - RESPIRATORY TRACT INFECTION [None]
  - WHITE BLOOD CELL COUNT INCREASED [None]
